FAERS Safety Report 5851881-6 (Version None)
Quarter: 2008Q3

REPORT INFORMATION
  Report Type: 
  Country: None (occurrence: None)
  Receive Date: 20080820
  Receipt Date: 20080808
  Transmission Date: 20090109
  Serious: Yes (Other)
  Sender: FDA-Public Use
  Company Number: BR-PFIZER INC-2008067580

PATIENT
  Sex: Male

DRUGS (1)
  1. VIAGRA [Suspect]
     Dosage: TEXT:UNKNOWN UNKNOW UNKNOWN TDD:UNKNOWN
     Route: 048

REACTIONS (1)
  - HAEMORRHAGE [None]
